FAERS Safety Report 9416456 (Version 1)
Quarter: 2013Q3

REPORT INFORMATION
  Report Type: Spontaneous
  Country: US (occurrence: None)
  Receive Date: 20130718
  Receipt Date: 20130718
  Transmission Date: 20140515
  Serious: Yes (Hospitalization)
  Sender: FDA-Public Use
  Company Number: TCI2013A01672

PATIENT
  Age: 81 Year
  Sex: Male

DRUGS (9)
  1. ACTOS (PIOGLITAZONE HYDROCHLORIDE) [Suspect]
     Dates: start: 20110608, end: 20120522
  2. MIX (INSULIN LISPRO, INSULIN LISPRO PROMATINE SUSPENSION) [Concomitant]
  3. SEIBULE (MIGLITOL) [Concomitant]
  4. KINEDAK (EPALARESTATO) [Concomitant]
  5. POIPAN (CAMOSTAT MESILATE) [Concomitant]
  6. TSUMURA GOSHAJINKIGAN (HERBAL EXTRACT) [Concomitant]
  7. LYRICA(PREGAMBLIN) [Concomitant]
  8. LASIX (FUROSEMIDE) [Concomitant]
  9. DIOVAN (VALSARTAN) [Concomitant]

REACTIONS (4)
  - Renal impairment [None]
  - Fall [None]
  - Humerus fracture [None]
  - Thermal burn [None]
